FAERS Safety Report 7703545-1 (Version None)
Quarter: 2011Q3

REPORT INFORMATION
  Report Type: 
  Country: None (occurrence: None)
  Receive Date: 20110823
  Receipt Date: 20110808
  Transmission Date: 20111222
  Serious: Yes (Hospitalization)
  Sender: FDA-Public Use
  Company Number: PHHY2011IT72106

PATIENT
  Sex: Male

DRUGS (9)
  1. AULIN [Suspect]
     Indication: BACK PAIN
     Dosage: 1 DF, UNK
     Route: 048
     Dates: start: 20110101, end: 20110415
  2. DEURSIL [Concomitant]
     Dosage: UNK UKN, UNK
  3. TENORETIC 100 [Suspect]
     Indication: HYPERTENSION
     Dosage: ONE POSOLOGIC UNIT
     Route: 048
     Dates: start: 20110421, end: 20110421
  4. EPROSARTAN MESILATE [Concomitant]
     Dosage: UNK UKN, UNK
  5. ARTHROTEC [Suspect]
     Indication: BACK PAIN
     Dosage: ONE POSOLOGIC UNIT
     Route: 048
     Dates: start: 20110315, end: 20110325
  6. TORADOL [Suspect]
     Indication: BACK PAIN
     Dosage: 40 DROPS
     Route: 048
     Dates: start: 20110325, end: 20110415
  7. ORUDIS [Suspect]
     Indication: BACK PAIN
     Dosage: TWO POSOLOGIC UNITS
     Route: 048
     Dates: start: 20110415, end: 20110420
  8. TRAMADOL HCL [Concomitant]
     Dosage: UNK UKN, UNK
  9. VOLTAREN [Suspect]
     Indication: BACK PAIN
     Dosage: 75 MG, UNK
     Route: 048
     Dates: start: 20110101, end: 20110415

REACTIONS (8)
  - RENAL FAILURE ACUTE [None]
  - BLOOD UREA INCREASED [None]
  - TUBULOINTERSTITIAL NEPHRITIS [None]
  - RENAL TUBULAR ATROPHY [None]
  - URETERIC STENOSIS [None]
  - RETROPERITONEAL FIBROSIS [None]
  - BLOOD CREATININE INCREASED [None]
  - NEPHROSCLEROSIS [None]
